FAERS Safety Report 6496676-8 (Version None)
Quarter: 2009Q4

REPORT INFORMATION
  Report Type: 
  Country: None (occurrence: None)
  Receive Date: 20091210
  Receipt Date: 20091201
  Transmission Date: 20100525
  Serious: Yes (Life-Threatening, Disabling)
  Sender: FDA-Public Use
  Company Number: 2009AL007592

PATIENT
  Age: 29 Year
  Sex: Female

DRUGS (2)
  1. RANITIDINE [Suspect]
     Indication: ANTACID THERAPY
     Dosage: 50 MG;IV
     Route: 042
     Dates: start: 20080530, end: 20080530
  2. PARACETAMOL [Concomitant]

REACTIONS (2)
  - ANAPHYLACTIC REACTION [None]
  - TACHYCARDIA [None]
